FAERS Safety Report 5230481-5 (Version None)
Quarter: 2007Q1

REPORT INFORMATION
  Report Type: 
  Country: None (occurrence: None)
  Receive Date: 20070206
  Receipt Date: 20070123
  Transmission Date: 20070707
  Serious: Yes (Hospitalization)
  Sender: FDA-Public Use
  Company Number: PHBS2007FR01376

PATIENT
  Age: 63 Year
  Sex: Female
  Weight: 74 kg

DRUGS (4)
  1. DIFFU K [Concomitant]
     Route: 048
     Dates: start: 20040101
  2. PERINDOPRIL ERBUMINE [Concomitant]
     Route: 048
     Dates: start: 20000101
  3. LEVOTHYROXINE SODIUM [Concomitant]
     Route: 048
     Dates: start: 20041201
  4. LOGROTON [Suspect]
     Indication: HYPERTENSION
     Route: 048
     Dates: start: 19850101

REACTIONS (1)
  - CEREBROVASCULAR ACCIDENT [None]
